FAERS Safety Report 9558340 (Version 1)
Quarter: 2013Q3

REPORT INFORMATION
  Report Type: Spontaneous
  Country: CA (occurrence: CA)
  Receive Date: 20130926
  Receipt Date: 20130926
  Transmission Date: 20140515
  Serious: Yes (Other)
  Sender: FDA-Public Use
  Company Number: CHPA2013CA014579

PATIENT
  Age: 83 Year
  Sex: Male

DRUGS (1)
  1. TRANSDERM-V [Suspect]
     Indication: PROPHYLAXIS OF NAUSEA AND VOMITING
     Dosage: UNK, UNK
     Dates: start: 2013

REACTIONS (2)
  - Depression [Unknown]
  - Incorrect drug administration duration [Unknown]
